FAERS Safety Report 4840830-5 (Version None)
Quarter: 2005Q4

REPORT INFORMATION
  Report Type: 
  Country: None (occurrence: None)
  Receive Date: 20051130
  Receipt Date: 20050523
  Transmission Date: 20060501
  Serious: Yes (Hospitalization)
  Sender: FDA-Public Use
  Company Number: US-BRISTOL-MYERS SQUIBB COMPANY-12978078

PATIENT
  Age: 70 Year
  Sex: Female
  Weight: 81 kg

DRUGS (15)
  1. AVALIDE [Suspect]
     Indication: HYPERTENSION
  2. BACTRIM [Concomitant]
  3. TESSALON [Concomitant]
  4. NEURONTIN [Concomitant]
  5. VALIUM [Concomitant]
  6. TOFRANIL [Concomitant]
  7. PROTONIX [Concomitant]
  8. PRINIVIL [Concomitant]
  9. CARDIZEM [Concomitant]
  10. STARLIX [Concomitant]
  11. CATAPRES [Concomitant]
     Route: 062
  12. HUMULIN INSULIN [Concomitant]
     Dosage: DOSAGE FORM = UNITS
  13. PRAVACHOL [Concomitant]
  14. COUMADIN [Concomitant]
  15. SINGULAIR [Concomitant]

REACTIONS (2)
  - BLOOD MAGNESIUM DECREASED [None]
  - BLOOD SODIUM DECREASED [None]
